FAERS Safety Report 24092339 (Version 1)
Quarter: 2024Q3

REPORT INFORMATION
  Report Type: Spontaneous
  Country: US (occurrence: None)
  Receive Date: 20240715
  Receipt Date: 20240715
  Transmission Date: 20241016
  Serious: Yes (Death)
  Sender: Public
  Company Number: None

PATIENT
  Age: 74 Year
  Sex: Male

DRUGS (1)
  1. H.P. ACTHAR [Suspect]
     Active Substance: CORTICOTROPIN
     Indication: Nephrotic syndrome
     Dosage: OTHER STRENGTH : 80 U/ML;?OTHER QUANTITY : 80 UNITS;?OTHER FREQUENCY : EVERY 72 HOURS;?

REACTIONS (1)
  - Death [None]
